FAERS Safety Report 11276773 (Version 1)
Quarter: 2015Q3

REPORT INFORMATION
  Report Type: Report from Study
  Country: IL (occurrence: IL)
  Receive Date: 20150716
  Receipt Date: 20150716
  Transmission Date: 20151125
  Serious: Yes (Death)
  Sender: FDA-Public Use
  Company Number: IL-PFIZER INC-2015232895

PATIENT
  Age: 68 Year
  Sex: Female

DRUGS (1)
  1. PALBOCICLIB [Suspect]
     Active Substance: PALBOCICLIB
     Indication: BREAST CANCER METASTATIC
     Dosage: 125 MG, DAILY, FOR 21 DAYS, FOLLOWED BY 7 DAYS OFF TREATMENT IN A 28 DAYS CYCLE

REACTIONS (1)
  - Death [Fatal]
